FAERS Safety Report 4920289-X (Version None)
Quarter: 2006Q1

REPORT INFORMATION
  Report Type: 
  Country: None (occurrence: None)
  Receive Date: 20060223
  Receipt Date: 20060215
  Transmission Date: 20060701
  Serious: Yes (Death)
  Sender: FDA-Public Use
  Company Number: JP-JPN-A200600647

PATIENT
  Age: 47 Year
  Sex: Male

DRUGS (2)
  1. ZEFIX [Suspect]
     Indication: HEPATITIS B
     Route: 048
     Dates: end: 20051201
  2. HEPSERA [Concomitant]
     Route: 048

REACTIONS (1)
  - HEPATITIS B [None]
